FAERS Safety Report 9862700 (Version 1)
Quarter: 2014Q1

REPORT INFORMATION
  Report Type: Spontaneous
  Country: US (occurrence: US)
  Receive Date: 20140203
  Receipt Date: 20140203
  Transmission Date: 20141002
  Serious: Yes (Death)
  Sender: FDA-Public Use
  Company Number: PHHY2014US011666

PATIENT
  Age: 83 Year
  Sex: Male

DRUGS (5)
  1. TELBIVUDINE [Suspect]
  2. RITUXIMAB [Concomitant]
     Dosage: 1 DF
  3. CYTOXAN [Concomitant]
  4. VINCRISTINE [Concomitant]
  5. PREDNISONE [Concomitant]

REACTIONS (1)
  - Acute hepatic failure [Fatal]
